FAERS Safety Report 8866729 (Version 1)
Quarter: 2012Q4

REPORT INFORMATION
  Report Type: 
  Country: US (occurrence: US)
  Receive Date: 20121025
  Receipt Date: 20121025
  Transmission Date: 20130627
  Serious: No
  Sender: FDA-Public Use
  Company Number: US-AMGEN-USASP2012013156

PATIENT
  Age: 28 Year
  Sex: Male

DRUGS (3)
  1. ENBREL [Suspect]
     Indication: PSORIASIS
     Dosage: 50 mg, qwk
     Dates: start: 20080401
  2. ENBREL [Suspect]
     Indication: FIBROMYALGIA
  3. AUGMENTIN                          /00756801/ [Concomitant]
     Dosage: UNK

REACTIONS (8)
  - Swelling face [Recovered/Resolved]
  - Tooth abscess [Recovered/Resolved]
  - Pharyngitis streptococcal [Recovered/Resolved]
  - Pilonidal cyst [Recovered/Resolved]
  - Sinusitis [Not Recovered/Not Resolved]
  - Drug hypersensitivity [Recovered/Resolved]
  - Gastric infection [Recovered/Resolved]
  - Psoriasis [Not Recovered/Not Resolved]
